FAERS Safety Report 6335984-8 (Version None)
Quarter: 2009Q3

REPORT INFORMATION
  Report Type: 
  Country: None (occurrence: None)
  Receive Date: 20090901
  Receipt Date: 20090827
  Transmission Date: 20100115
  Serious: Yes (Other)
  Sender: FDA-Public Use
  Company Number: US-ALLERGAN-0912033US

PATIENT
  Age: 62 Year
  Sex: Female

DRUGS (1)
  1. BOTOX COSMETIC [Suspect]
     Indication: SKIN WRINKLING
     Dosage: 73 UNITS, SINGLE
     Route: 030
     Dates: start: 20090622, end: 20090622

REACTIONS (2)
  - ASPIRATION [None]
  - DYSPHAGIA [None]
